FAERS Safety Report 9416655 (Version 4)
Quarter: 2013Q4

REPORT INFORMATION
  Report Type: Spontaneous
  Country: FR (occurrence: FR)
  Receive Date: 20130724
  Receipt Date: 20131031
  Transmission Date: 20140711
  Serious: Yes (Death, Life-Threatening, Hospitalization, Other)
  Sender: FDA-Public Use
  Company Number: FR-ASTELLAS-2013US007694

PATIENT
  Age: 33 Year
  Sex: Male
  Weight: 64 kg

DRUGS (17)
  1. AMBISOME [Suspect]
     Indication: ASPERGILLUS INFECTION
     Dosage: 8 MG/KG, UID/QD
     Route: 042
     Dates: start: 20130324, end: 20130515
  2. AMBISOME [Suspect]
     Indication: FUSARIUM INFECTION
  3. INEXIUM /01479302/ [Suspect]
     Indication: GASTROINTESTINAL HAEMORRHAGE
     Dosage: 40 MG, UID/QD
     Route: 042
     Dates: start: 20130325, end: 20130702
  4. INEXIUM /01479302/ [Suspect]
     Dosage: 80 MG, UID/QD
     Route: 042
     Dates: start: 20130325, end: 20130702
  5. PARACETAMOL [Suspect]
     Indication: HYPERTHERMIA
     Dosage: 1 G, UNKNOWN/D
     Route: 048
     Dates: start: 20130325, end: 20130515
  6. ORGARAN [Suspect]
     Indication: PRODUCT USED FOR UNKNOWN INDICATION
     Dosage: UNK
     Route: 065
     Dates: start: 20130625, end: 20130702
  7. MORPHINE [Concomitant]
     Indication: PRODUCT USED FOR UNKNOWN INDICATION
     Dosage: UNK
     Route: 065
     Dates: start: 20130326, end: 20130706
  8. APO-FLUCONAZOLE [Concomitant]
     Indication: PRODUCT USED FOR UNKNOWN INDICATION
     Dosage: UNK
     Route: 065
  9. CANCIDAS [Concomitant]
     Indication: PRODUCT USED FOR UNKNOWN INDICATION
     Dosage: UNK
     Route: 065
  10. MIDAZOLAM [Concomitant]
     Indication: PRODUCT USED FOR UNKNOWN INDICATION
     Dosage: UNK
     Route: 065
     Dates: start: 20130325, end: 20130714
  11. HUMALOG [Concomitant]
     Indication: PRODUCT USED FOR UNKNOWN INDICATION
     Dosage: UNK
     Route: 065
     Dates: start: 20130327, end: 20130714
  12. MOTILIUM                           /00498201/ [Concomitant]
     Indication: PRODUCT USED FOR UNKNOWN INDICATION
     Dosage: UNK
     Route: 065
     Dates: start: 20130325, end: 20130714
  13. DUPHALAC                           /00163401/ [Concomitant]
     Indication: PRODUCT USED FOR UNKNOWN INDICATION
     Dosage: UNK
     Route: 065
     Dates: start: 20130327, end: 20130714
  14. LOXAPAC                            /00401801/ [Concomitant]
     Indication: PRODUCT USED FOR UNKNOWN INDICATION
     Dosage: UNK
     Route: 065
     Dates: start: 20130406, end: 20130515
  15. TIENAM [Concomitant]
     Indication: PRODUCT USED FOR UNKNOWN INDICATION
     Dosage: UNK
     Route: 065
     Dates: start: 20130514, end: 20130526
  16. VANCOMYCINE [Concomitant]
     Indication: PRODUCT USED FOR UNKNOWN INDICATION
     Dosage: UNK
     Route: 065
     Dates: start: 20130514, end: 20130526
  17. AMIKACINE                          /00391001/ [Concomitant]
     Indication: PRODUCT USED FOR UNKNOWN INDICATION
     Dosage: UNK
     Route: 065
     Dates: start: 20130514, end: 20130515

REACTIONS (4)
  - Cell death [Fatal]
  - Cholestasis [Fatal]
  - Jaundice [Fatal]
  - Thrombocytopenia [Fatal]
